FAERS Safety Report 15471680 (Version 1)
Quarter: 2018Q4

REPORT INFORMATION
  Report Type: Spontaneous
  Country: US (occurrence: US)
  Receive Date: 20181008
  Receipt Date: 20181008
  Transmission Date: 20190205
  Serious: No
  Sender: FDA-Public Use
  Company Number: US-SHIRE-US201838232

PATIENT
  Age: 73 Year
  Sex: Female
  Weight: 58.96 kg

DRUGS (3)
  1. SAVAYSA [Concomitant]
     Active Substance: EDOXABAN TOSYLATE
     Indication: ATRIAL FIBRILLATION
  2. METOPROLOL. [Concomitant]
     Active Substance: METOPROLOL
     Indication: PRODUCT USED FOR UNKNOWN INDICATION
  3. XIIDRA [Suspect]
     Active Substance: LIFITEGRAST
     Indication: DRY EYE
     Dosage: 1 GTT, 2X/DAY:BID
     Route: 047
     Dates: start: 20180929, end: 20180929

REACTIONS (2)
  - Instillation site erythema [Recovered/Resolved]
  - Instillation site pain [Recovered/Resolved]

NARRATIVE: CASE EVENT DATE: 20180929
